FAERS Safety Report 6743903-5 (Version None)
Quarter: 2010Q2

REPORT INFORMATION
  Report Type: 
  Country: None (occurrence: None)
  Receive Date: 20100527
  Receipt Date: 20100521
  Transmission Date: 20101027
  Serious: Yes (Other)
  Sender: FDA-Public Use
  Company Number: BE-ASTRAZENECA-2010SE13462

PATIENT
  Age: 673 Month
  Sex: Female

DRUGS (3)
  1. NEXIUM [Suspect]
     Route: 048
  2. LEVOTHYROXINE SODIUM [Concomitant]
     Dosage: 125
     Route: 048
  3. ZESTORETIC [Concomitant]
     Dosage: 20/125
     Route: 048

REACTIONS (1)
  - RHEUMATOID ARTHRITIS [None]
